FAERS Safety Report 5015405-8 (Version None)
Quarter: 2006Q2

REPORT INFORMATION
  Report Type: 
  Country: None (occurrence: None)
  Receive Date: 20060601
  Receipt Date: 20060526
  Transmission Date: 20061013
  Serious: Yes (Death, Hospitalization)
  Sender: FDA-Public Use
  Company Number: PHHO2006JP08634

PATIENT
  Age: 53 Year
  Sex: Male
  Weight: 58 kg

DRUGS (3)
  1. NORVASC [Concomitant]
     Indication: HYPERTENSION
  2. CARDENALIN [Concomitant]
     Indication: HYPERTENSION
  3. DIOVAN [Suspect]
     Indication: HYPERTENSION
     Dosage: 80 MG, QD
     Route: 048
     Dates: start: 20021216

REACTIONS (3)
  - AORTIC DISSECTION [None]
  - CARDIAC TAMPONADE [None]
  - CARDIO-RESPIRATORY ARREST [None]
